FAERS Safety Report 12873662 (Version 2)
Quarter: 2019Q4

REPORT INFORMATION
  Report Type: Spontaneous
  Country: JP (occurrence: JP)
  Receive Date: 20161021
  Receipt Date: 20191107
  Transmission Date: 20200122
  Serious: Yes (Other)
  Sender: FDA-Public Use
  Company Number: JP-BAYER-2016-200169

PATIENT
  Age: 90 Year
  Sex: Female

DRUGS (1)
  1. CIPROXAN 200 MG [Suspect]
     Active Substance: CIPROFLOXACIN
     Indication: DEVICE RELATED INFECTION
     Dosage: UNK

REACTIONS (1)
  - Pathogen resistance [None]
